FAERS Safety Report 6812812-5 (Version None)
Quarter: 2010Q3

REPORT INFORMATION
  Report Type: 
  Country: None (occurrence: None)
  Receive Date: 20100701
  Receipt Date: 20100623
  Transmission Date: 20110219
  Serious: Yes (Hospitalization)
  Sender: FDA-Public Use
  Company Number: B0663163A

PATIENT
  Age: 82 Year
  Sex: Male

DRUGS (5)
  1. ALKERAN [Suspect]
     Indication: MULTIPLE MYELOMA
     Dosage: 10MG PER DAY
     Route: 048
     Dates: start: 20100514
  2. DELTACORTENE [Concomitant]
     Indication: MULTIPLE MYELOMA
     Route: 048
  3. BACTRIM [Concomitant]
     Route: 048
  4. TALAVIR [Concomitant]
     Indication: ANTIVIRAL PROPHYLAXIS
     Route: 048
  5. ASPIRIN [Concomitant]
     Indication: PLATELET DISORDER
     Route: 048

REACTIONS (2)
  - PULMONARY EMBOLISM [None]
  - PULMONARY INFARCTION [None]
